FAERS Safety Report 24707722 (Version 1)
Quarter: 2024Q4

REPORT INFORMATION
  Report Type: Spontaneous
  Country: RO (occurrence: RO)
  Receive Date: 20241206
  Receipt Date: 20241206
  Transmission Date: 20250115
  Serious: Yes (Other)
  Sender: ABBVIE
  Company Number: RO-ABBVIE-6029461

PATIENT
  Age: 69 Year
  Sex: Female

DRUGS (1)
  1. VENETOCLAX [Suspect]
     Active Substance: VENETOCLAX
     Indication: Chronic lymphocytic leukaemia
     Route: 048
     Dates: start: 202302

REACTIONS (8)
  - Tumour flare [Unknown]
  - Splenomegaly [Unknown]
  - Disease recurrence [Unknown]
  - Chronic lymphocytic leukaemia [Unknown]
  - Thrombocytopenia [Unknown]
  - Lymphadenopathy [Unknown]
  - Lymphadenopathy [Unknown]
  - Cytopenia [Recovered/Resolved]

NARRATIVE: CASE EVENT DATE: 20241101
